FAERS Safety Report 5485325-3 (Version None)
Quarter: 2007Q4

REPORT INFORMATION
  Report Type: 
  Country: None (occurrence: None)
  Receive Date: 20071015
  Receipt Date: 20071005
  Transmission Date: 20080405
  Serious: Yes (Other)
  Sender: FDA-Public Use
  Company Number: PHBS2007BR16650

PATIENT
  Age: 78 Year
  Sex: Female

DRUGS (4)
  1. RECLAST [Suspect]
     Dosage: 600 MG, QD
     Route: 042
     Dates: start: 20070928
  2. CAPTOPRIL [Concomitant]
     Indication: HYPERTENSION
     Dosage: 25 MG/DAY
  3. FLUIMUCIL [Concomitant]
     Indication: PROPHYLAXIS
     Dosage: 600 MG, QD
  4. CALCIUM [Concomitant]

REACTIONS (5)
  - ABASIA [None]
  - APATHY [None]
  - HEADACHE [None]
  - HYPERTENSION [None]
  - PAIN [None]
